FAERS Safety Report 13283783 (Version 1)
Quarter: 2017Q1

REPORT INFORMATION
  Report Type: Spontaneous
  Country: US (occurrence: US)
  Receive Date: 20170301
  Receipt Date: 20170301
  Transmission Date: 20170428
  Serious: Yes (Hospitalization)
  Sender: FDA-Public Use
  Company Number: US-AMGEN-USASP2017029348

PATIENT
  Sex: Male

DRUGS (1)
  1. REPATHA [Suspect]
     Active Substance: EVOLOCUMAB
     Indication: PRODUCT USED FOR UNKNOWN INDICATION
     Dosage: UNK
     Route: 065

REACTIONS (17)
  - Confusional state [Recovered/Resolved]
  - Memory impairment [Recovered/Resolved]
  - Aphonia [Recovered/Resolved]
  - Eye pain [Recovered/Resolved]
  - Pain [Recovered/Resolved]
  - Toothache [Recovered/Resolved]
  - Back pain [Recovered/Resolved]
  - Pharyngeal oedema [Recovered/Resolved]
  - Cerebral disorder [Not Recovered/Not Resolved]
  - Ear pain [Recovered/Resolved]
  - Globulins increased [Recovered/Resolved]
  - Dysphonia [Recovered/Resolved]
  - Cold-stimulus headache [Recovered/Resolved]
  - Carbon dioxide increased [Recovered/Resolved]
  - Blood potassium increased [Recovered/Resolved]
  - Therapeutic response unexpected [Recovered/Resolved]
  - Tinnitus [Not Recovered/Not Resolved]
